FAERS Safety Report 14673445 (Version 1)
Quarter: 2018Q1

REPORT INFORMATION
  Report Type: Report from Study
  Country: US (occurrence: US)
  Receive Date: 20180323
  Receipt Date: 20180323
  Transmission Date: 20180509
  Serious: Yes (Other)
  Sender: FDA-Public Use
  Company Number: US-BAYER-2017-186813

PATIENT
  Sex: Male
  Weight: 93.88 kg

DRUGS (5)
  1. STIVARGA [Suspect]
     Active Substance: REGORAFENIB
     Indication: COLON CANCER
     Dosage: 120 MG, DAILY FOR 21 DAYS
     Route: 048
  2. FISH OIL [Concomitant]
     Active Substance: FISH OIL
  3. STIVARGA [Suspect]
     Active Substance: REGORAFENIB
     Indication: COLON CANCER
     Dosage: 160 MG, DAILY FOR 21 DAYS
     Route: 048
     Dates: start: 20170731
  4. POTASSIUM [Concomitant]
     Active Substance: POTASSIUM
  5. LOSARTAN. [Concomitant]
     Active Substance: LOSARTAN

REACTIONS (6)
  - Palmar-plantar erythrodysaesthesia syndrome [Not Recovered/Not Resolved]
  - Gait inability [Unknown]
  - Pain in extremity [Recovering/Resolving]
  - Pain in extremity [Unknown]
  - Stomatitis [Not Recovered/Not Resolved]
  - Rash erythematous [Not Recovered/Not Resolved]

NARRATIVE: CASE EVENT DATE: 2017
